FAERS Safety Report 4986691-5 (Version None)
Quarter: 2006Q2

REPORT INFORMATION
  Report Type: 
  Country: None (occurrence: None)
  Receive Date: 20060428
  Receipt Date: 20050912
  Transmission Date: 20061013
  Serious: Yes (Hospitalization, Other)
  Sender: FDA-Public Use
  Company Number: US-MERCK-0509USA01590

PATIENT
  Age: 75 Year
  Sex: Female
  Weight: 73 kg

DRUGS (2)
  1. VIOXX [Suspect]
     Indication: ARTHRITIS
     Route: 048
     Dates: start: 20010301, end: 20040201
  2. VIOXX [Suspect]
     Route: 048

REACTIONS (23)
  - ABDOMINAL PAIN UPPER [None]
  - ADRENAL ADENOMA [None]
  - ARTHRALGIA [None]
  - ASTHENIA [None]
  - BACK PAIN [None]
  - CEREBROVASCULAR ACCIDENT [None]
  - CONJUNCTIVITIS [None]
  - DIARRHOEA [None]
  - DIASTOLIC DYSFUNCTION [None]
  - DYSPNOEA EXERTIONAL [None]
  - EXPOSURE TO CHEMICAL POLLUTION [None]
  - EYE DISORDER [None]
  - FAECAL INCONTINENCE [None]
  - FATIGUE [None]
  - GAIT DISTURBANCE [None]
  - GASTROINTESTINAL DISORDER [None]
  - HYPOAESTHESIA [None]
  - OEDEMA PERIPHERAL [None]
  - PARAESTHESIA [None]
  - THYROID DISORDER [None]
  - TRANSIENT ISCHAEMIC ATTACK [None]
  - URINARY TRACT INFECTION [None]
  - VERTEBRAL COLUMN MASS [None]
